FAERS Safety Report 8505461-4 (Version None)
Quarter: 2012Q3

REPORT INFORMATION
  Report Type: 
  Country: None (occurrence: None)
  Receive Date: 20120703
  Receipt Date: 20120626
  Transmission Date: 20120928
  Serious: Yes (Hospitalization)
  Sender: FDA-Public Use
  Company Number: 2012SP036091

PATIENT
  Age: 61 Year
  Sex: Male

DRUGS (9)
  1. GLIMEPIRIDE [Concomitant]
  2. RAMIPRIL [Concomitant]
  3. CRESTOR [Concomitant]
  4. TEMODAL [Suspect]
     Indication: METASTATIC MALIGNANT MELANOMA
     Dosage: 1 DF;QD;PO
     Route: 048
     Dates: start: 20120514, end: 20120611
  5. KEPPRA [Concomitant]
  6. POTASSIUM CHLORIDE [Concomitant]
  7. ACETAMINOPHEN [Concomitant]
  8. PREDNISONE [Suspect]
     Indication: PRODUCT USED FOR UNKNOWN INDICATION
     Dosage: 20 MG;TID;PO
     Route: 048
  9. NEXIUM [Concomitant]

REACTIONS (10)
  - DYSPNOEA [None]
  - POLYURIA [None]
  - GRAND MAL CONVULSION [None]
  - BLOOD PRESSURE SYSTOLIC INCREASED [None]
  - TYPE 2 DIABETES MELLITUS [None]
  - HEMIPARESIS [None]
  - HYPERGLYCAEMIA [None]
  - THIRST [None]
  - CREATININE RENAL CLEARANCE INCREASED [None]
  - CONDITION AGGRAVATED [None]
